FAERS Safety Report 5239904-9 (Version None)
Quarter: 2007Q1

REPORT INFORMATION
  Report Type: 
  Country: None (occurrence: None)
  Receive Date: 20070216
  Receipt Date: 20070130
  Transmission Date: 20070707
  Serious: Yes (Hospitalization, Other)
  Sender: FDA-Public Use
  Company Number: US-PFIZER INC-2007000952

PATIENT
  Sex: Female
  Weight: 154.2 kg

DRUGS (4)
  1. BEXTRA [Suspect]
     Indication: FIBROMYALGIA
  2. EFFEXOR [Concomitant]
  3. PROZAC [Concomitant]
  4. NEXIUM [Concomitant]

REACTIONS (1)
  - STEVENS-JOHNSON SYNDROME [None]
